FAERS Safety Report 16661450 (Version 6)
Quarter: 2020Q4

REPORT INFORMATION
  Report Type: Spontaneous
  Country: US (occurrence: US)
  Receive Date: 20190802
  Receipt Date: 20201002
  Transmission Date: 20210113
  Serious: No
  Sender: FDA-Public Use
  Company Number: US-PFIZER INC-2019332534

PATIENT
  Age: 57 Year
  Sex: Female
  Weight: 68.95 kg

DRUGS (3)
  1. LYRICA [Suspect]
     Active Substance: PREGABALIN
     Indication: POLYNEUROPATHY IDIOPATHIC PROGRESSIVE
     Dosage: 300 MG, DAILY (1 IN THE MORNING AND 1 AT NIGHT)
     Route: 048
     Dates: start: 201810, end: 20190721
  2. LYRICA [Suspect]
     Active Substance: PREGABALIN
     Dosage: 150 MG, 2X/DAY
     Route: 048
  3. LYRICA [Suspect]
     Active Substance: PREGABALIN
     Indication: NEUROPATHY PERIPHERAL
     Dosage: UNK
     Dates: end: 2018

REACTIONS (5)
  - Respiration abnormal [Unknown]
  - Memory impairment [Unknown]
  - Headache [Recovered/Resolved]
  - Stress [Unknown]
  - Dyslexia [Unknown]
